FAERS Safety Report 6254017-5 (Version None)
Quarter: 2009Q3

REPORT INFORMATION
  Report Type: 
  Country: None (occurrence: None)
  Receive Date: 20090702
  Receipt Date: 20090701
  Transmission Date: 20100115
  Serious: Yes (Hospitalization, Other)
  Sender: FDA-Public Use
  Company Number: US-ROCHE-639654

PATIENT
  Age: 17 Year
  Sex: Male

DRUGS (11)
  1. MYCOPHENOLATE MOFETIL [Suspect]
     Indication: IMMUNOSUPPRESSION
     Route: 065
  2. RITUXIMAB [Suspect]
     Indication: IMMUNOSUPPRESSION
     Route: 065
  3. CYCLOPHOSPHAMIDE [Concomitant]
     Dosage: RECEIVED FOR 4 DAYS
  4. AZATHIOPRINE [Concomitant]
  5. PYRIDOSTIGMINE BROMIDE [Concomitant]
     Dosage: STOPPED FOR 3 MONTHS FOR THE FIRST TIME IN 12 YEARS
  6. PYRIDOSTIGMINE BROMIDE [Concomitant]
  7. ALEMTUZUMAB [Concomitant]
     Dosage: DELIVERED FOR 3 DAYS
  8. BUSULFAN [Concomitant]
     Dosage: 600 NG/ML GIVEN IN 16 DOSES FOR 4 DAYS
  9. FLUDARABINE PHOSPHATE [Concomitant]
     Dosage: FOR FOUR DAYS
  10. METHOTREXATE [Concomitant]
     Indication: PROPHYLAXIS
     Dosage: 4 DOSES ON DAYS 1, 3, 6 AND 11 POST TRANSPLANT
  11. CYCLOSPORINE [Concomitant]
     Indication: PROPHYLAXIS
     Dosage: STOPPED 1 YEAR POST TRANSPLANT

REACTIONS (9)
  - CYTOMEGALOVIRUS INFECTION [None]
  - DRUG INEFFECTIVE [None]
  - FACIAL PALSY [None]
  - JAW DISORDER [None]
  - MOOD SWINGS [None]
  - MUCOSAL INFLAMMATION [None]
  - OPHTHALMOPLEGIA [None]
  - STAPHYLOCOCCAL BACTERAEMIA [None]
  - SUICIDAL IDEATION [None]
